FAERS Safety Report 21965865 (Version 2)
Quarter: 2023Q1

REPORT INFORMATION
  Report Type: Report from Study
  Country: JP (occurrence: JP)
  Receive Date: 20230208
  Receipt Date: 20230306
  Transmission Date: 20230418
  Serious: Yes (Death, Hospitalization, Other)
  Sender: FDA-Public Use
  Company Number: JP-CHUGAI-2022050340AA

PATIENT
  Age: 74 Year
  Sex: Female
  Weight: 63.3 kg

DRUGS (2)
  1. ATEZOLIZUMAB [Suspect]
     Active Substance: ATEZOLIZUMAB
     Indication: Hepatocellular carcinoma
     Dosage: 1200 MILLIGRAM, ONCE/3WEEKS
     Route: 041
     Dates: start: 20220727, end: 20221227
  2. BEVACIZUMAB [Suspect]
     Active Substance: BEVACIZUMAB
     Indication: Hepatocellular carcinoma
     Dosage: 15 MILLIGRAM/KILOGRAM, ONCE/3WEEKS
     Route: 041
     Dates: start: 20220727, end: 20221222

REACTIONS (10)
  - Upper gastrointestinal haemorrhage [Fatal]
  - Proteinuria [Unknown]
  - Ascites [Not Recovered/Not Resolved]
  - Blood bilirubin increased [Unknown]
  - Enterocolitis infectious [Unknown]
  - Spontaneous bacterial peritonitis [Unknown]
  - Hepatic atrophy [Unknown]
  - Renal impairment [Unknown]
  - Portal hypertension [Unknown]
  - Hepatic failure [Unknown]

NARRATIVE: CASE EVENT DATE: 20230128
